FAERS Safety Report 17745236 (Version 2)
Quarter: 2020Q2

REPORT INFORMATION
  Report Type: Report from Study
  Country: None (occurrence: NL)
  Receive Date: 20200504
  Receipt Date: 20200612
  Transmission Date: 20200714
  Serious: Yes (Other)
  Sender: FDA-Public Use
  Company Number: NL-ABBVIE-18K-114-2405375-00

PATIENT
  Age: 77 Year
  Sex: Female

DRUGS (11)
  1. SYMMETREL [Concomitant]
     Active Substance: AMANTADINE HYDROCHLORIDE
     Indication: PARKINSON^S DISEASE
     Route: 048
  2. LEVODOPA [Concomitant]
     Active Substance: LEVODOPA
     Indication: PARKINSON^S DISEASE
  3. DUODOPA [Suspect]
     Active Substance: CARBIDOPA\LEVODOPA
     Indication: PARKINSON^S DISEASE
     Dosage: MD 3, CD 2.3, ED 1, CND 1.4, END 1
     Route: 050
     Dates: start: 20180109, end: 2018
  4. FUCIDINE [FUSIDIC ACID] [Suspect]
     Active Substance: FUSIDIC ACID
     Indication: STOMA COMPLICATION
     Route: 065
  5. ROPINIROLE. [Concomitant]
     Active Substance: ROPINIROLE
     Indication: PARKINSON^S DISEASE
     Route: 048
  6. DUODOPA [Suspect]
     Active Substance: CARBIDOPA\LEVODOPA
     Dosage: MD: 3.0, CD: 2.8, ED: 1.5, CND: 1.7, END: 1.0; 24 HOUR ADMINISTRATION
     Route: 050
  7. MACROGOL [Concomitant]
     Active Substance: POLYETHYLENE GLYCOLS
     Indication: ABNORMAL FAECES
  8. DUODOPA [Suspect]
     Active Substance: CARBIDOPA\LEVODOPA
     Dosage: MD: 3.0, CD: 2.5, ED: 1.0, CND: 1.6, END: 1.0
     Route: 050
     Dates: start: 2018, end: 20180823
  9. DUODOPA [Suspect]
     Active Substance: CARBIDOPA\LEVODOPA
     Dosage: MD: 3.0, CD: 3.0, ED: 1.0, CND: 1.7, END: 1.0; 24 HOUR ADMINISTRATION
     Route: 050
  10. MACROGOL [Concomitant]
     Active Substance: POLYETHYLENE GLYCOLS
     Indication: ABNORMAL FAECES
  11. DUODOPA [Suspect]
     Active Substance: CARBIDOPA\LEVODOPA
     Dosage: MD: 4.0, CD: 2.5, ED: 1.0, CND: 1.7, END: 1.0?24 HOUR ADMINISTRATION
     Route: 050
     Dates: start: 20180823

REACTIONS (38)
  - Device loosening [Recovered/Resolved]
  - Fatigue [Not Recovered/Not Resolved]
  - Insomnia [Not Recovered/Not Resolved]
  - Dyskinesia [Not Recovered/Not Resolved]
  - Mobility decreased [Not Recovered/Not Resolved]
  - Extra dose administered [Unknown]
  - Musculoskeletal stiffness [Not Recovered/Not Resolved]
  - Stoma site pain [Not Recovered/Not Resolved]
  - Stress [Not Recovered/Not Resolved]
  - Middle insomnia [Recovered/Resolved]
  - Parkinsonian gait [Not Recovered/Not Resolved]
  - Discomfort [Not Recovered/Not Resolved]
  - Fibroma [Not Recovered/Not Resolved]
  - Weight bearing difficulty [Not Recovered/Not Resolved]
  - Loss of personal independence in daily activities [Not Recovered/Not Resolved]
  - Memory impairment [Not Recovered/Not Resolved]
  - Abnormal dreams [Not Recovered/Not Resolved]
  - On and off phenomenon [Not Recovered/Not Resolved]
  - Cerebrovascular accident [Recovered/Resolved]
  - Anxiety [Unknown]
  - Incorrect dose administered [Recovered/Resolved]
  - Stoma site erythema [Not Recovered/Not Resolved]
  - Bradykinesia [Not Recovered/Not Resolved]
  - Feeling abnormal [Recovering/Resolving]
  - Tension [Not Recovered/Not Resolved]
  - Device leakage [Not Recovered/Not Resolved]
  - General physical health deterioration [Not Recovered/Not Resolved]
  - Muscle rigidity [Not Recovered/Not Resolved]
  - Asthenia [Not Recovered/Not Resolved]
  - Stoma site discharge [Recovered/Resolved]
  - Procedural pain [Not Recovered/Not Resolved]
  - Weight decreased [Not Recovered/Not Resolved]
  - Skin atrophy [Not Recovered/Not Resolved]
  - Erythema [Not Recovered/Not Resolved]
  - Pyrexia [Not Recovered/Not Resolved]
  - Stoma site discharge [Not Recovered/Not Resolved]
  - Hyperkinesia [Not Recovered/Not Resolved]
  - Stoma site odour [Not Recovered/Not Resolved]

NARRATIVE: CASE EVENT DATE: 20180621
